FAERS Safety Report 25353648 (Version 1)
Quarter: 2025Q2

REPORT INFORMATION
  Report Type: Spontaneous
  Country: MX (occurrence: MX)
  Receive Date: 20250523
  Receipt Date: 20250523
  Transmission Date: 20250716
  Serious: Yes (Other)
  Sender: Kenvue
  Company Number: MX-KENVUE-20250506451

PATIENT

DRUGS (1)
  1. IBUPROFEN [Suspect]
     Active Substance: IBUPROFEN
     Indication: Pyrexia
     Route: 065

REACTIONS (7)
  - Acute hepatic failure [Not Recovered/Not Resolved]
  - Hepatosplenomegaly [Not Recovered/Not Resolved]
  - Hepatic necrosis [Not Recovered/Not Resolved]
  - Cholestasis [Not Recovered/Not Resolved]
  - Coagulopathy [Not Recovered/Not Resolved]
  - Product administered to patient of inappropriate age [Unknown]
  - Upper gastrointestinal haemorrhage [Not Recovered/Not Resolved]
